FAERS Safety Report 10214058 (Version 2)
Quarter: 2014Q2

REPORT INFORMATION
  Report Type: Spontaneous
  Country: FR (occurrence: FR)
  Receive Date: 20140603
  Receipt Date: 20140603
  Transmission Date: 20141212
  Serious: Yes (Other)
  Sender: FDA-Public Use
  Company Number: FR-PFIZER INC-2014137078

PATIENT
  Sex: Female

DRUGS (2)
  1. ZOLOFT [Suspect]
     Dosage: 3 DF, DAILY
  2. DEPAMIDE [Concomitant]

REACTIONS (5)
  - Aggression [Unknown]
  - Abasia [Unknown]
  - Irritability [Unknown]
  - Paraesthesia [Unknown]
  - Insomnia [Unknown]
